FAERS Safety Report 10702990 (Version 1)
Quarter: 2015Q1

REPORT INFORMATION
  Report Type: Spontaneous
  Country: US (occurrence: US)
  Receive Date: 20150111
  Receipt Date: 20150111
  Transmission Date: 20150721
  Serious: No
  Sender: FDA-Public Use
  Company Number: US-ASTRAZENECA-2014SE82128

PATIENT
  Age: 50 Year
  Sex: Female

DRUGS (1)
  1. BRILINTA [Suspect]
     Active Substance: TICAGRELOR
     Indication: CATHETERISATION CARDIAC
     Dosage: 180 MG, UNKNOWN
     Route: 048
     Dates: start: 201410

REACTIONS (4)
  - Dyspnoea [Unknown]
  - Dyspnoea [Unknown]
  - Bronchospasm [Unknown]
  - Wheezing [Unknown]

NARRATIVE: CASE EVENT DATE: 2014
